FAERS Safety Report 9613619 (Version 1)
Quarter: 2013Q4

REPORT INFORMATION
  Report Type: Spontaneous
  Country: US (occurrence: US)
  Receive Date: 20131010
  Receipt Date: 20131010
  Transmission Date: 20140711
  Serious: Yes (Hospitalization)
  Sender: FDA-Public Use
  Company Number: US-TEVA-364731USA

PATIENT
  Sex: Female

DRUGS (2)
  1. JOLESSA TABLET 0.15/0.03MG [Suspect]
     Indication: CONTRACEPTION
     Route: 048
     Dates: start: 201112, end: 201203
  2. JOLESSA TABLET 0.15/0.03MG [Suspect]
     Indication: MENORRHAGIA

REACTIONS (6)
  - Thrombosis [Unknown]
  - Skin discolouration [Unknown]
  - Pain in extremity [Unknown]
  - Raynaud^s phenomenon [Unknown]
  - Neuralgia [Not Recovered/Not Resolved]
  - Hypoaesthesia [Not Recovered/Not Resolved]
